FAERS Safety Report 7560294-0 (Version None)
Quarter: 2011Q2

REPORT INFORMATION
  Report Type: 
  Country: None (occurrence: None)
  Receive Date: 20110621
  Receipt Date: 20110617
  Transmission Date: 20111010
  Serious: Yes (Other)
  Sender: FDA-Public Use
  Company Number: CH-PFIZER INC-CH-WYE-G06220510

PATIENT
  Sex: Male

DRUGS (8)
  1. EFFEXOR XR [Suspect]
     Dosage: 75 MG, 1X/DAY
     Route: 064
     Dates: start: 20081201, end: 20090201
  2. ESCITALOPRAM [Suspect]
     Dosage: 5 MG, 1X/DAY
     Route: 064
     Dates: start: 20090401, end: 20090806
  3. ALCOHOL [Suspect]
     Dosage: OCCASIONALLLY DURING PREGNANCY
     Route: 065
  4. CANNABIS [Concomitant]
     Dosage: UNK
     Route: 064
  5. ESCITALOPRAM [Suspect]
     Dosage: 40 MG, 1X/DAY
     Route: 064
     Dates: start: 20090201, end: 20090201
  6. OXAZEPAM [Suspect]
     Dosage: 15 MG, 1X/DAY
     Route: 064
     Dates: start: 20090201, end: 20090201
  7. TRAZODONE HCL [Suspect]
     Dosage: 50 MG, 1X/PRN
     Route: 064
     Dates: start: 20080101, end: 20090201
  8. BUSPAR [Suspect]
     Dosage: 10 MG, 3X/DAY
     Route: 064
     Dates: start: 20080101, end: 20090201

REACTIONS (3)
  - RESPIRATORY DISORDER NEONATAL [None]
  - DRUG EXPOSURE DURING PREGNANCY [None]
  - MATERNAL DRUGS AFFECTING FOETUS [None]
